FAERS Safety Report 9565635 (Version 1)
Quarter: 2013Q3

REPORT INFORMATION
  Report Type: Spontaneous
  Country: SE (occurrence: SE)
  Receive Date: 20130930
  Receipt Date: 20130930
  Transmission Date: 20140515
  Serious: Yes (Other)
  Sender: FDA-Public Use
  Company Number: SE-ABBVIE-13P-150-1152698-00

PATIENT
  Age: 46 Year
  Sex: Female

DRUGS (2)
  1. ERGENYL [Suspect]
     Indication: EPILEPSY
     Route: 048
     Dates: end: 20130503
  2. VALPROIC ACID [Concomitant]
     Indication: PRODUCT USED FOR UNKNOWN INDICATION

REACTIONS (6)
  - Angioedema [Unknown]
  - Sleep disorder [Unknown]
  - Oedema peripheral [Unknown]
  - Condition aggravated [Unknown]
  - Local swelling [Unknown]
  - Local swelling [Unknown]
